FAERS Safety Report 4547449-4 (Version None)
Quarter: 2004Q4

REPORT INFORMATION
  Report Type: 
  Country: None (occurrence: None)
  Receive Date: 20041227
  Receipt Date: 20041001
  Transmission Date: 20050328
  Serious: No
  Sender: FDA-Public Use
  Company Number: 04P-163-0275805-00

PATIENT
  Age: 72 Year
  Sex: Male
  Weight: 83.9154 kg

DRUGS (1)
  1. HUMIRA [Suspect]
     Indication: POLYMYOSITIS
     Dosage: 40 MG, 1 IN 1 WK, SUBCUTANEOUS
     Route: 058
     Dates: start: 20040528

REACTIONS (3)
  - INJECTION SITE HAEMORRHAGE [None]
  - OEDEMA [None]
  - OEDEMA PERIPHERAL [None]
